FAERS Safety Report 16399359 (Version 6)
Quarter: 2019Q4

REPORT INFORMATION
  Report Type: Report from Study
  Country: GB (occurrence: GB)
  Receive Date: 20190606
  Receipt Date: 20191224
  Transmission Date: 20200122
  Serious: Yes (Hospitalization)
  Sender: FDA-Public Use
  Company Number: GB-SEATTLE GENETICS-2019SGN01833

PATIENT
  Age: 78 Year
  Sex: Male
  Weight: 50 kg

DRUGS (3)
  1. BRENTUXIMAB VEDOTIN [Suspect]
     Active Substance: BRENTUXIMAB VEDOTIN
     Indication: CUTANEOUS T-CELL LYMPHOMA
     Dosage: 1.8 MG/KG, Q3WEEKS
     Route: 042
     Dates: start: 20190503, end: 20190524
  2. DONEPEZIL. [Concomitant]
     Active Substance: DONEPEZIL
     Dosage: UNK, QD
     Route: 048
     Dates: start: 20190217
  3. BRENTUXIMAB VEDOTIN [Suspect]
     Active Substance: BRENTUXIMAB VEDOTIN
     Dosage: 1.8 MG/KG, Q3WEEKS
     Route: 042
     Dates: start: 20190701

REACTIONS (3)
  - Fall [Recovered/Resolved]
  - Sepsis [Recovered/Resolved with Sequelae]
  - Lower respiratory tract infection [Recovered/Resolved with Sequelae]

NARRATIVE: CASE EVENT DATE: 20190524
